FAERS Safety Report 11709287 (Version 1)
Quarter: 2015Q4

REPORT INFORMATION
  Report Type: Spontaneous
  Country: US (occurrence: US)
  Receive Date: 20151104
  Receipt Date: 20151104
  Transmission Date: 20160304
  Serious: No
  Sender: FDA-Public Use
  Company Number: US-ELI_LILLY_AND_COMPANY-US201109002351

PATIENT
  Sex: Female

DRUGS (3)
  1. INSULIN [Concomitant]
     Active Substance: INSULIN NOS
  2. FORTEO [Suspect]
     Active Substance: TERIPARATIDE
     Indication: OSTEOPOROSIS
     Dosage: 20 UG, QD
     Route: 065
     Dates: start: 201106
  3. FORTEO [Suspect]
     Active Substance: TERIPARATIDE
     Dosage: 20 UG, QD
     Route: 065

REACTIONS (8)
  - Cardiac disorder [Unknown]
  - Sensation of foreign body [Unknown]
  - Muscle spasms [Unknown]
  - Injection site erythema [Recovered/Resolved]
  - Drug dose omission [Recovered/Resolved]
  - Dehydration [Unknown]
  - Adverse event [Unknown]
  - Nausea [Recovered/Resolved]
